FAERS Safety Report 4335885-0 (Version None)
Quarter: 2004Q2

REPORT INFORMATION
  Report Type: 
  Country: None (occurrence: None)
  Receive Date: 20040406
  Receipt Date: 20040324
  Transmission Date: 20050107
  Serious: Yes (Life-Threatening, Hospitalization)
  Sender: FDA-Public Use
  Company Number: 30019069-NA01-1

PATIENT
  Age: 55 Year
  Sex: Female
  Weight: 40.3 kg

DRUGS (10)
  1. EXTRANEAL [Suspect]
     Indication: PERITONEAL DIALYSIS
     Dosage: 7.5% ICODEXTRIN 1.5L QD IP
     Route: 033
     Dates: start: 20040225, end: 20040307
  2. EXTRANEAL [Suspect]
     Indication: PERITONEAL DIALYSIS
     Dosage: 7.5% ICODEXTRIN 1.5L QD IP
     Route: 033
     Dates: start: 20040318, end: 20040324
  3. DIANEAL [Concomitant]
  4. HEPARIN [Concomitant]
  5. CA CARBONATE [Concomitant]
  6. SENNOSIDE [Concomitant]
  7. LIPOVAS (SIMVASTATIN) [Concomitant]
  8. CHLORPHENYLAMINE MALEATE [Concomitant]
  9. HALCION [Concomitant]
  10. EPOETIN ALFA [Concomitant]

REACTIONS (6)
  - CEREBROVASCULAR DISORDER [None]
  - CHEYNE-STOKES RESPIRATION [None]
  - DYSPNOEA [None]
  - SOMNOLENCE [None]
  - TACHYPNOEA [None]
  - VASCULAR CALCIFICATION [None]
